FAERS Safety Report 7013997-0 (Version None)
Quarter: 2010Q3

REPORT INFORMATION
  Report Type: 
  Country: None (occurrence: None)
  Receive Date: 20100926
  Receipt Date: 20100923
  Transmission Date: 20110219
  Serious: Yes (Other)
  Sender: FDA-Public Use
  Company Number: US-BRISTOL-MYERS SQUIBB COMPANY-15293855

PATIENT
  Age: 36 Year
  Sex: Male

DRUGS (1)
  1. ESTRADIOL [Suspect]
     Indication: TRANSGENDER HORMONAL THERAPY
     Dosage: ESTRADIOL PATCHES FOR MORE THAN 10 YEARS

REACTIONS (1)
  - MENINGIOMA [None]
